FAERS Safety Report 19175322 (Version 2)
Quarter: 2022Q2

REPORT INFORMATION
  Report Type: Spontaneous
  Country: US (occurrence: US)
  Receive Date: 20210423
  Receipt Date: 20220407
  Transmission Date: 20220721
  Serious: Yes (Other)
  Sender: FDA-Public Use
  Company Number: US-GLAXOSMITHKLINE-US2021GSK091382

PATIENT
  Sex: Female

DRUGS (25)
  1. ZANTAC [Suspect]
     Active Substance: RANITIDINE HYDROCHLORIDE
     Indication: Dyspepsia
     Dosage: 75 MG, PERIODS OF NON-USE
     Route: 065
     Dates: start: 198401, end: 201905
  2. ZANTAC [Suspect]
     Active Substance: RANITIDINE HYDROCHLORIDE
     Indication: Gastrooesophageal reflux disease
     Dosage: 150 MG, PERIODS OF NON-USE
     Route: 065
     Dates: start: 198401, end: 201905
  3. ZANTAC [Suspect]
     Active Substance: RANITIDINE HYDROCHLORIDE
     Dosage: 300 MG, PERIODS OF NON-USE
     Route: 065
     Dates: start: 198401, end: 201905
  4. ZANTAC [Suspect]
     Active Substance: RANITIDINE HYDROCHLORIDE
     Indication: Dyspepsia
     Dosage: 75 MG, PERIODS OF NON-USE
     Route: 065
     Dates: start: 198401, end: 201905
  5. ZANTAC [Suspect]
     Active Substance: RANITIDINE HYDROCHLORIDE
     Indication: Gastrooesophageal reflux disease
     Dosage: 150 MG, PERIODS OF NON-USE
     Route: 065
     Dates: start: 198401, end: 201905
  6. ZANTAC [Suspect]
     Active Substance: RANITIDINE HYDROCHLORIDE
     Dosage: 300 MG, PERIODS OF NON-USE
     Route: 065
     Dates: start: 198401, end: 201905
  7. RANITIDINE [Suspect]
     Active Substance: RANITIDINE
     Indication: Dyspepsia
     Dosage: 75 MG, PERIODS OF NON-USE
     Route: 065
     Dates: start: 198405, end: 201905
  8. RANITIDINE [Suspect]
     Active Substance: RANITIDINE
     Indication: Gastrooesophageal reflux disease
     Dosage: 150 MG, PERIODS OF NON-USE
     Route: 065
     Dates: start: 198405, end: 201905
  9. RANITIDINE [Suspect]
     Active Substance: RANITIDINE
     Dosage: 300 MG, PERIODS OF NON-USE
     Route: 065
     Dates: start: 198405, end: 201905
  10. RANITIDINE [Suspect]
     Active Substance: RANITIDINE
     Indication: Dyspepsia
     Dosage: 75 MG, PERIODS OF NON-USE
     Route: 065
     Dates: start: 198405, end: 201905
  11. RANITIDINE [Suspect]
     Active Substance: RANITIDINE
     Indication: Gastrooesophageal reflux disease
     Dosage: 150 MG, PERIODS OF NON-USE
     Route: 065
     Dates: start: 198405, end: 201905
  12. RANITIDINE [Suspect]
     Active Substance: RANITIDINE
     Dosage: 300 MG, PERIODS OF NON-USE
     Route: 065
     Dates: start: 198405, end: 201905
  13. RANITIDINE HYDROCHLORIDE [Suspect]
     Active Substance: RANITIDINE HYDROCHLORIDE
     Indication: Dyspepsia
     Dosage: UNK, PERIODS OF NON-USE
     Route: 065
     Dates: start: 198401, end: 201905
  14. RANITIDINE HYDROCHLORIDE [Suspect]
     Active Substance: RANITIDINE HYDROCHLORIDE
     Indication: Gastrooesophageal reflux disease
  15. ZANTAC [Suspect]
     Active Substance: RANITIDINE HYDROCHLORIDE
     Indication: Dyspepsia
     Dosage: 75 MG, PERIODS OF NON-USE
     Route: 065
     Dates: start: 198401, end: 201905
  16. ZANTAC [Suspect]
     Active Substance: RANITIDINE HYDROCHLORIDE
     Indication: Gastrooesophageal reflux disease
     Dosage: 150 MG, PERIODS OF NON-USE
     Route: 065
     Dates: start: 198401, end: 201905
  17. ZANTAC [Suspect]
     Active Substance: RANITIDINE HYDROCHLORIDE
     Dosage: 300 MG, PERIODS OF NON-USE
     Route: 065
     Dates: start: 198401, end: 201905
  18. RANITIDINE [Suspect]
     Active Substance: RANITIDINE
     Indication: Dyspepsia
     Dosage: 75 MG, PERIODS OF NON-USE
     Route: 065
     Dates: start: 198405, end: 201905
  19. RANITIDINE [Suspect]
     Active Substance: RANITIDINE
     Indication: Gastrooesophageal reflux disease
     Dosage: 150 MG,PERIODS OF NON-USE
     Route: 065
     Dates: start: 198405, end: 201905
  20. RANITIDINE [Suspect]
     Active Substance: RANITIDINE
     Dosage: 300 MG, PERIODS OF NON-USE
     Route: 065
     Dates: start: 198405, end: 201905
  21. RANITIDINE [Suspect]
     Active Substance: RANITIDINE
     Indication: Dyspepsia
     Dosage: 75 MG, PERIODS OF NON-USE
     Route: 065
     Dates: start: 198405, end: 201905
  22. RANITIDINE [Suspect]
     Active Substance: RANITIDINE
     Indication: Gastrooesophageal reflux disease
     Dosage: 150 MG, PERIODS OF NON-USE
     Route: 065
     Dates: start: 198405, end: 201905
  23. RANITIDINE [Suspect]
     Active Substance: RANITIDINE
     Dosage: 300 MG, PERIODS OF NON-USE
     Route: 065
     Dates: start: 198405, end: 201905
  24. ZANTAC [Suspect]
     Active Substance: RANITIDINE HYDROCHLORIDE
     Indication: Dyspepsia
     Dosage: UNK, PERIODS OF NON-USE
     Route: 065
     Dates: start: 198401, end: 201905
  25. ZANTAC [Suspect]
     Active Substance: RANITIDINE HYDROCHLORIDE
     Indication: Gastrooesophageal reflux disease

REACTIONS (1)
  - Breast cancer [Unknown]
